FAERS Safety Report 5189431-2 (Version None)
Quarter: 2006Q4

REPORT INFORMATION
  Report Type: 
  Country: None (occurrence: None)
  Receive Date: 20061215
  Receipt Date: 20061205
  Transmission Date: 20070319
  Serious: Yes (Hospitalization, Other)
  Sender: FDA-Public Use
  Company Number: 2006150541

PATIENT
  Age: 71 Year
  Sex: Female
  Weight: 77.1115 kg

DRUGS (13)
  1. NEURONTIN [Suspect]
     Indication: NEUROPATHY
     Dosage: 100MG (100MG,1 IN 1 D)
     Dates: start: 20060601
  2. ADALAT [Concomitant]
  3. WELLBUTRIN SR [Concomitant]
  4. PROZAC [Concomitant]
  5. ESTRACE [Concomitant]
  6. FOSAMAX [Concomitant]
  7. CLINDAMYCIN (CLINDAMYCIN) [Concomitant]
  8. IMITREX [Concomitant]
  9. CALCIUM WITH VITAMIND (CALCIUM PHOSPHATE,CALCIUM SODIUM LACTATE, ERGOC [Concomitant]
  10. VITAMIN C (VITAMIN C) [Concomitant]
  11. VITAMIN E [Concomitant]
  12. LUTEIN (XANTHOPHYLL) [Concomitant]
  13. VITAMIN B COMPLEX (CALCIUM PANTOTHENATE,NICOTINAMIDE, PYRIDOXINE HYDRO [Concomitant]

REACTIONS (8)
  - FATIGUE [None]
  - HAEMATOCRIT DECREASED [None]
  - HAEMOGLOBIN DECREASED [None]
  - HAEMORRHAGE [None]
  - HYPERSOMNIA [None]
  - LOCALISED INFECTION [None]
  - RED BLOOD CELL COUNT DECREASED [None]
  - WOUND [None]
